FAERS Safety Report 24922124 (Version 1)
Quarter: 2025Q1

REPORT INFORMATION
  Report Type: Spontaneous
  Country: US (occurrence: US)
  Receive Date: 20250204
  Receipt Date: 20250204
  Transmission Date: 20250409
  Serious: Yes (Hospitalization, Other)
  Sender: BAYER HEALTHCARE PHARMACEUTICALS INC.
  Company Number: US-BAYER-2025A012543

PATIENT
  Sex: Female

DRUGS (1)
  1. MIRENA [Suspect]
     Active Substance: LEVONORGESTREL
     Dosage: 20?G/DAY
     Route: 015
     Dates: start: 201904, end: 202409

REACTIONS (4)
  - Myocardial infarction [None]
  - Cerebrovascular accident [None]
  - Hospitalisation [None]
  - Hospitalisation [None]

NARRATIVE: CASE EVENT DATE: 20230228
